FAERS Safety Report 6733899-4 (Version None)
Quarter: 2010Q2

REPORT INFORMATION
  Report Type: 
  Country: None (occurrence: None)
  Receive Date: 20100520
  Receipt Date: 20100512
  Transmission Date: 20101027
  Serious: Yes (Other)
  Sender: FDA-Public Use
  Company Number: US-BAYER-201013109GPV

PATIENT
  Age: 53 Year
  Sex: Male

DRUGS (7)
  1. SORAFENIB [Suspect]
     Indication: HEPATIC NEOPLASM MALIGNANT
  2. SORAFENIB [Suspect]
     Dosage: TOTAL DAILY DOSE: 400 MG
  3. ANTIBIOTICS [Concomitant]
     Indication: PERITONITIS BACTERIAL
  4. RED BLOOD CELLS [Concomitant]
     Indication: HAEMORRHAGE
  5. FRESH FROZEN PLASMA [Concomitant]
     Indication: HAEMORRHAGE
  6. PLATELETS [Concomitant]
     Indication: HAEMORRHAGE
  7. OXYCODONE [Concomitant]
     Indication: DRUG USE FOR UNKNOWN INDICATION

REACTIONS (3)
  - PALMAR-PLANTAR ERYTHRODYSAESTHESIA SYNDROME [None]
  - PANCREATITIS [None]
  - RASH [None]
